FAERS Safety Report 8335998-2 (Version None)
Quarter: 2012Q2

REPORT INFORMATION
  Report Type: 
  Country: None (occurrence: None)
  Receive Date: 20120501
  Receipt Date: 20120501
  Transmission Date: 20120825
  Serious: Yes (Hospitalization)
  Sender: FDA-Public Use
  Company Number: None

PATIENT
  Age: 73 Year
  Sex: Female
  Weight: 46.7 kg

DRUGS (11)
  1. LIPITOR [Concomitant]
  2. LASIX [Concomitant]
  3. POTASSIUM CHLORIDE [Concomitant]
  4. COUMADIN [Concomitant]
  5. METOPROLOL TARTRATE [Concomitant]
  6. CARDIZEM CD [Concomitant]
  7. LEVOTHYROXINE SODIUM [Concomitant]
  8. VITAMIN B-12 [Concomitant]
  9. LEVAQUIN [Concomitant]
  10. IMODIUM [Concomitant]
  11. DIGOXIN [Suspect]
     Indication: ATRIAL FIBRILLATION
     Dosage: 125MCG QAM PO CHRONIC
     Route: 048

REACTIONS (4)
  - CARDIOACTIVE DRUG LEVEL INCREASED [None]
  - BRONCHIAL HYPERREACTIVITY [None]
  - DYSPNOEA [None]
  - DIZZINESS [None]
